FAERS Safety Report 14592435 (Version 1)
Quarter: 2018Q1

REPORT INFORMATION
  Report Type: Spontaneous
  Country: US (occurrence: US)
  Receive Date: 20180302
  Receipt Date: 20180302
  Transmission Date: 20180509
  Serious: Yes (Death)
  Sender: FDA-Public Use
  Company Number: US-PFIZER INC-2018089042

PATIENT
  Age: 68 Year
  Sex: Male
  Weight: 43 kg

DRUGS (1)
  1. VFEND [Suspect]
     Active Substance: VORICONAZOLE
     Indication: LEUKAEMIA
     Dosage: 200 MG, TWICE DAILY
     Route: 048

REACTIONS (2)
  - Product use in unapproved indication [Unknown]
  - Leukaemia recurrent [Fatal]
